FAERS Safety Report 13030528 (Version 1)
Quarter: 2016Q4

REPORT INFORMATION
  Report Type: Spontaneous
  Country: US (occurrence: US)
  Receive Date: 20161215
  Receipt Date: 20161215
  Transmission Date: 20170207
  Serious: No
  Sender: FDA-Public Use
  Company Number: None

PATIENT
  Age: 61 Year
  Sex: Male

DRUGS (2)
  1. CYCLOSPORINE CAP 25MG MOD [Suspect]
     Active Substance: CYCLOSPORINE
     Indication: LUNG TRANSPLANT
  2. CYCLOSPORINE CAP 25MG MOD [Suspect]
     Active Substance: CYCLOSPORINE
     Indication: PRODUCT USED FOR UNKNOWN INDICATION

REACTIONS (2)
  - Headache [None]
  - Alopecia [None]

NARRATIVE: CASE EVENT DATE: 20161001
